FAERS Safety Report 4903138-5 (Version None)
Quarter: 2006Q1

REPORT INFORMATION
  Report Type: 
  Country: None (occurrence: None)
  Receive Date: 20060207
  Receipt Date: 20060110
  Transmission Date: 20060701
  Serious: Yes (Other)
  Sender: FDA-Public Use
  Company Number: US-BRISTOL-MYERS SQUIBB COMPANY-13242433

PATIENT
  Age: 88 Year
  Sex: Female
  Weight: 78 kg

DRUGS (17)
  1. TEQUIN [Suspect]
     Indication: UPPER RESPIRATORY TRACT INFECTION
     Route: 048
     Dates: start: 20051227, end: 20051231
  2. COUMADIN [Concomitant]
  3. ASPIRIN [Concomitant]
  4. ALLOPURINOL [Concomitant]
  5. HYDROCHLOROTHIAZIDE [Concomitant]
  6. DILTIAZEM HCL [Concomitant]
  7. ZESTRIL [Concomitant]
  8. MULTIVITAMIN W/IRON [Concomitant]
  9. CLOBETASOL [Concomitant]
  10. PRANDIN [Concomitant]
  11. VITAMIN E [Concomitant]
  12. MECLIZINE [Concomitant]
  13. ATARAX [Concomitant]
  14. EXTRA STRENGTH TYLENOL [Concomitant]
  15. LASIX [Concomitant]
     Dosage: 20 TO 40 MG DAILY
  16. SYSTANE [Concomitant]
     Route: 047
  17. PRILOSEC [Concomitant]

REACTIONS (1)
  - BLOOD GLUCOSE DECREASED [None]
